FAERS Safety Report 17172113 (Version 1)
Quarter: 2019Q4

REPORT INFORMATION
  Report Type: Report from Study
  Country: RO (occurrence: RO)
  Receive Date: 20191219
  Receipt Date: 20191219
  Transmission Date: 20200122
  Serious: Yes (Congenital Anomaly, Other)
  Sender: FDA-Public Use
  Company Number: RO-MYLANLABS-2019M1124200

PATIENT
  Age: 1 Week
  Sex: Male
  Weight: 3 kg

DRUGS (2)
  1. LAMIVUDINE/ZIDOVUDINE [Suspect]
     Active Substance: LAMIVUDINE\ZIDOVUDINE
     Indication: HIV INFECTION
     Dosage: 1 DOSAGE FORM (1 TAB/CAP)
     Route: 064
  2. NEVIRAPINE. [Suspect]
     Active Substance: NEVIRAPINE
     Indication: HIV INFECTION
     Dosage: 400 MILLIGRAM, QD
     Route: 064

REACTIONS (3)
  - Cerebellar hypoplasia [Unknown]
  - Dandy-Walker syndrome [Unknown]
  - Foetal exposure during pregnancy [Recovered/Resolved]
